APPROVED DRUG PRODUCT: GLYCOPYRROLATE
Active Ingredient: GLYCOPYRROLATE
Strength: 2MG
Dosage Form/Route: TABLET;ORAL
Application: A091182 | Product #002 | TE Code: AA
Applicant: REGCON HOLDINGS LLC
Approved: Feb 3, 2014 | RLD: No | RS: No | Type: RX